FAERS Safety Report 6579421-7 (Version None)
Quarter: 2010Q1

REPORT INFORMATION
  Report Type: 
  Country: None (occurrence: None)
  Receive Date: 20100209
  Receipt Date: 20100209
  Transmission Date: 20100710
  Serious: Yes (Other)
  Sender: FDA-Public Use
  Company Number: None

PATIENT
  Age: 32 Month
  Sex: Female
  Weight: 13.6079 kg

DRUGS (4)
  1. SINGULAIR [Suspect]
     Indication: ASTHMA
     Dosage: 4MG 1 TABLET ONCE A DA BUCCAL
     Route: 002
     Dates: start: 20090401, end: 20090630
  2. SINGULAIR [Suspect]
     Indication: HYPERSENSITIVITY
     Dosage: 4MG 1 TABLET ONCE A DA BUCCAL
     Route: 002
     Dates: start: 20090401, end: 20090630
  3. SINGULAIR [Suspect]
     Indication: ASTHMA
     Dosage: 4MG 1 TABLET ONCE A DA BUCCAL
     Route: 002
     Dates: start: 20100130, end: 20100205
  4. SINGULAIR [Suspect]
     Indication: HYPERSENSITIVITY
     Dosage: 4MG 1 TABLET ONCE A DA BUCCAL
     Route: 002
     Dates: start: 20100130, end: 20100205

REACTIONS (5)
  - ABNORMAL BEHAVIOUR [None]
  - CRYING [None]
  - MOOD ALTERED [None]
  - PRODUCT QUALITY ISSUE [None]
  - SCREAMING [None]
